FAERS Safety Report 15075112 (Version 1)
Quarter: 2018Q2

REPORT INFORMATION
  Report Type: Spontaneous
  Country: US (occurrence: US)
  Receive Date: 20180627
  Receipt Date: 20180627
  Transmission Date: 20180711
  Serious: Yes (Other)
  Sender: FDA-Public Use
  Company Number: US-SAOL THERAPEUTICS-2017SAO01542

PATIENT
  Age: 59 Year
  Sex: Female

DRUGS (6)
  1. BACLOFEN. [Suspect]
     Active Substance: BACLOFEN
     Indication: PARKINSONISM
  2. BACLOFEN. [Suspect]
     Active Substance: BACLOFEN
     Indication: MOVEMENT DISORDER
  3. BACLOFEN. [Suspect]
     Active Substance: BACLOFEN
     Indication: PAIN
     Route: 037
  4. HYDROMORPHONE [Suspect]
     Active Substance: HYDROMORPHONE
     Dosage: 0.150 MG, \DAY
     Route: 037
  5. BUPIVACAINE. [Suspect]
     Active Substance: BUPIVACAINE
     Dosage: 3.442 MG, \DAY
     Route: 037
  6. DILAUDID [Suspect]
     Active Substance: HYDROMORPHONE HYDROCHLORIDE
     Route: 037

REACTIONS (9)
  - Paraesthesia [Recovered/Resolved]
  - Pain in extremity [Unknown]
  - Diarrhoea [Unknown]
  - Feeling cold [Unknown]
  - Therapy non-responder [Unknown]
  - Muscular weakness [Recovered/Resolved]
  - Hyperhidrosis [Unknown]
  - Nausea [Unknown]
  - Abdominal discomfort [Unknown]

NARRATIVE: CASE EVENT DATE: 20170410
